FAERS Safety Report 11127321 (Version 2)
Quarter: 2015Q2

REPORT INFORMATION
  Report Type: Report from Study
  Country: US (occurrence: None)
  Receive Date: 20150519
  Receipt Date: 20150526
  Transmission Date: 20150821
  Serious: Yes (Hospitalization, Other)
  Sender: FDA-Public Use
  Company Number: 2015-11291

PATIENT
  Age: 56 Year
  Sex: Male

DRUGS (1)
  1. EYLEA [Suspect]
     Active Substance: AFLIBERCEPT
     Indication: PRODUCT USED FOR UNKNOWN INDICATION

REACTIONS (7)
  - Localised infection [None]
  - Dizziness [None]
  - Laceration [None]
  - Hospitalisation [None]
  - Loss of consciousness [None]
  - Impaired healing [None]
  - Drug dose omission [None]

NARRATIVE: CASE EVENT DATE: 201503
